FAERS Safety Report 7492282-7 (Version None)
Quarter: 2011Q2

REPORT INFORMATION
  Report Type: 
  Country: None (occurrence: None)
  Receive Date: 20110519
  Receipt Date: 20101221
  Transmission Date: 20111010
  Serious: No
  Sender: FDA-Public Use
  Company Number: US-NOVEN-ALL1-2010-06575

PATIENT
  Sex: Male
  Weight: 24.943 kg

DRUGS (2)
  1. DAYTRANA [Suspect]
     Dosage: 10 MG, 1X/DAY:QD
     Route: 062
     Dates: start: 20101101
  2. DAYTRANA [Suspect]
     Indication: ATTENTION DEFICIT/HYPERACTIVITY DISORDER
     Dosage: 10 MG, 1X/DAY:QD
     Route: 062
     Dates: start: 20100501, end: 20100901

REACTIONS (5)
  - THYROID DISORDER [None]
  - PRODUCT QUALITY ISSUE [None]
  - LIP SWELLING [None]
  - OFF LABEL USE [None]
  - URTICARIA [None]
